FAERS Safety Report 24428359 (Version 1)
Quarter: 2024Q4

REPORT INFORMATION
  Report Type: Spontaneous
  Country: US (occurrence: None)
  Receive Date: 20241011
  Receipt Date: 20241011
  Transmission Date: 20250115
  Serious: Yes (Hospitalization)
  Sender: Public
  Company Number: None

PATIENT
  Age: 67 Year
  Sex: Female

DRUGS (1)
  1. HYRIMOZ [Suspect]
     Active Substance: ADALIMUMAB-ADAZ
     Dosage: OTHER FREQUENCY : EVERY14DAYS;?
     Route: 042
     Dates: start: 202404

REACTIONS (5)
  - Depression [None]
  - Mood swings [None]
  - Alopecia [None]
  - Weight increased [None]
  - Therapeutic product effect decreased [None]

NARRATIVE: CASE EVENT DATE: 20240901
